FAERS Safety Report 7070052-1 (Version None)
Quarter: 2010Q4

REPORT INFORMATION
  Report Type: 
  Country: None (occurrence: None)
  Receive Date: 20101028
  Receipt Date: 20100819
  Transmission Date: 20110411
  Serious: No
  Sender: FDA-Public Use
  Company Number: US-WYE-H17039110

PATIENT
  Age: 20 Year
  Sex: Female
  Weight: 61.29 kg

DRUGS (3)
  1. PROTONIX [Suspect]
     Indication: GASTRIC ULCER
     Route: 048
     Dates: start: 20091201
  2. PAXIL [Concomitant]
  3. HYDROXYCHLOROQUINE [Concomitant]

REACTIONS (2)
  - CONDITION AGGRAVATED [None]
  - DERMATITIS HERPETIFORMIS [None]
